FAERS Safety Report 5508760-3 (Version None)
Quarter: 2007Q4

REPORT INFORMATION
  Report Type: 
  Country: None (occurrence: None)
  Receive Date: 20071107
  Receipt Date: 20071102
  Transmission Date: 20080405
  Serious: Yes (Life-Threatening, Disabling, Other)
  Sender: FDA-Public Use
  Company Number: A0691265A

PATIENT
  Sex: Male

DRUGS (3)
  1. AVODART [Suspect]
     Indication: BENIGN PROSTATIC HYPERPLASIA
     Dosage: .5MG PER DAY
     Route: 048
  2. HERBICIDE [Suspect]
     Indication: ILL-DEFINED DISORDER
  3. NO CONCURRENT MEDICATION [Concomitant]

REACTIONS (1)
  - PROSTATE CANCER METASTATIC [None]
